FAERS Safety Report 8173602-7 (Version None)
Quarter: 2012Q1

REPORT INFORMATION
  Report Type: 
  Country: None (occurrence: None)
  Receive Date: 20120229
  Receipt Date: 20120217
  Transmission Date: 20120608
  Serious: Yes (Hospitalization)
  Sender: FDA-Public Use
  Company Number: JP-PFIZER INC-2012051244

PATIENT
  Age: 51 Year
  Sex: Female

DRUGS (1)
  1. CELECOXIB [Suspect]
     Dosage: UNK
     Route: 048
     Dates: start: 20110301, end: 20110301

REACTIONS (1)
  - DRUG ERUPTION [None]
